FAERS Safety Report 5171661-7 (Version None)
Quarter: 2006Q4

REPORT INFORMATION
  Report Type: 
  Country: None (occurrence: None)
  Receive Date: 20061205
  Receipt Date: 20061120
  Transmission Date: 20070319
  Serious: Yes (Other)
  Sender: FDA-Public Use
  Company Number: 2006144197

PATIENT
  Sex: Female

DRUGS (3)
  1. LYRICA [Suspect]
  2. ACE INHIBITOR NOS (ACE INHIBITOR NOS) [Suspect]
  3. ALL OTHER THERAPEUTIC PRODUCTS (ALL OTHER THERAPEUTIC PRODUCTS) [Suspect]

REACTIONS (1)
  - COUGH [None]
